FAERS Safety Report 9802250 (Version 1)
Quarter: 2014Q1

REPORT INFORMATION
  Report Type: Spontaneous
  Country: US (occurrence: US)
  Receive Date: 20140107
  Receipt Date: 20140107
  Transmission Date: 20141002
  Serious: Yes (Other)
  Sender: FDA-Public Use
  Company Number: US-B.I. PHARMACEUTICALS,INC./RIDGEFIELD-2014-BI-00356BP

PATIENT
  Age: 66 Year
  Sex: Female

DRUGS (11)
  1. SPIRIVA [Suspect]
     Indication: CHRONIC OBSTRUCTIVE PULMONARY DISEASE
     Dosage: 18 MCG
     Route: 055
     Dates: start: 2013
  2. SPIRIVA [Suspect]
     Dosage: 18 MCG
     Route: 048
     Dates: start: 2013, end: 2013
  3. SPIRIVA [Suspect]
     Dosage: 18 MCG
     Route: 048
     Dates: start: 20140103, end: 20140103
  4. ADVAIR [Concomitant]
     Indication: CHRONIC OBSTRUCTIVE PULMONARY DISEASE
     Route: 055
  5. FUROSEMIDE [Concomitant]
     Indication: CHRONIC HEPATIC FAILURE
     Dosage: 40 MG
     Route: 048
  6. SPIRONOLACTONE [Concomitant]
     Indication: CHRONIC HEPATIC FAILURE
     Dosage: 100 MG
     Route: 048
  7. PROPRANOLOL [Concomitant]
     Indication: HYPERTENSION
     Dosage: 60 MG
     Route: 048
  8. POTASSIUM CHLORIDE [Concomitant]
     Indication: ELECTROLYTE SUBSTITUTION THERAPY
     Dosage: 20 MEQ
     Route: 048
  9. XISAXAN [Concomitant]
     Indication: CHRONIC HEPATIC FAILURE
     Dosage: 1100 MG
     Route: 048
  10. UNKNOWN DRUG [Concomitant]
     Indication: CHRONIC HEPATIC FAILURE
     Route: 048
  11. RESTORIL [Concomitant]
     Indication: INSOMNIA
     Dosage: 15 MG
     Route: 048

REACTIONS (3)
  - Lung adenocarcinoma [Not Recovered/Not Resolved]
  - Incorrect route of drug administration [Recovered/Resolved]
  - Incorrect route of drug administration [Recovered/Resolved]
